FAERS Safety Report 10042070 (Version 1)
Quarter: 2014Q1

REPORT INFORMATION
  Report Type: Spontaneous
  Country: US (occurrence: None)
  Receive Date: 20140325
  Receipt Date: 20140325
  Transmission Date: 20141002
  Serious: Yes (Death)
  Sender: FDA-Public Use
  Company Number: B0978505A

PATIENT
  Age: 16 Year
  Sex: 0

DRUGS (11)
  1. LAMOTRIGINE (FORMULATION UNKNOWN) (GENERIC) (LAMOTRIGINE) [Suspect]
  2. DIHYDROCODEINE (FORMULATION UNKNOWN) (DIHYDROCODEINE) [Suspect]
  3. EPHEDRINE (FORMULATION UNKNOWN) (EPHEDRINE) [Suspect]
  4. PSEUDOEPHEDRINE (FORMULATION UNKNOWN) (PSEUDOEPHEDRINE) [Suspect]
  5. HYDROCODONE (FORMULATION UNKNOWN) (HYDROCODONE) [Suspect]
  6. LORAZEPAM (FORMULATION UNKNOWN) (LORAZEPAM) [Suspect]
  7. METHYLPHENIDATE HCL (FORMULATION UNKNOWN) (METHYLPHENIDATE HCL) [Suspect]
  8. TRAZODONE (FORMULATION UNKNOWN) (TRAZODONE) [Suspect]
  9. ZIPRASIDONE HCL (FORMULATION UNKNOWN) (ZIPRASIDONE HCL) [Suspect]
  10. FLUOXETINE (FORMULATION UNKNOWN) (FLUOXETINE) (GENERIC) [Suspect]
     Indication: PRODUCT USED FOR UNKNOWN INDICATION
  11. PARACETAMOL (FORMULATION UNKNOWN)(GENERIC) (ACETAMINOPHEN) [Suspect]

REACTIONS (2)
  - Completed suicide [None]
  - Intentional overdose [None]
